FAERS Safety Report 11928424 (Version 1)
Quarter: 2016Q1

REPORT INFORMATION
  Report Type: Spontaneous
  Country: US (occurrence: US)
  Receive Date: 20160119
  Receipt Date: 20160119
  Transmission Date: 20160526
  Serious: Yes (Other)
  Sender: FDA-Public Use
  Company Number: US-MYLANLABS-2016M1002189

PATIENT

DRUGS (4)
  1. CISPLATIN. [Concomitant]
     Active Substance: CISPLATIN
     Indication: NON-SMALL CELL LUNG CANCER
     Route: 065
     Dates: start: 200903
  2. PEMETREXED [Suspect]
     Active Substance: PEMETREXED
     Indication: NON-SMALL CELL LUNG CANCER
     Route: 065
     Dates: start: 200903
  3. ERLOTINIB [Suspect]
     Active Substance: ERLOTINIB
     Indication: NON-SMALL CELL LUNG CANCER
     Dosage: 150 MG
     Route: 065
     Dates: start: 200707
  4. SUNITINIB [Concomitant]
     Active Substance: SUNITINIB
     Indication: NON-SMALL CELL LUNG CANCER
     Route: 065
     Dates: start: 200903

REACTIONS (2)
  - Drug resistance [Unknown]
  - Bone marrow failure [Unknown]
